FAERS Safety Report 24730165 (Version 1)
Quarter: 2024Q4

REPORT INFORMATION
  Report Type: Spontaneous
  Country: PL (occurrence: PL)
  Receive Date: 20241213
  Receipt Date: 20241213
  Transmission Date: 20250115
  Serious: Yes (Death, Other)
  Sender: BOEHRINGER INGELHEIM
  Company Number: PL-BoehringerIngelheim-2024-BI-068156

PATIENT
  Age: 68 Year
  Sex: Male

DRUGS (1)
  1. OFEV [Suspect]
     Active Substance: NINTEDANIB
     Indication: Rheumatoid arthritis-associated interstitial lung disease
     Dosage: WITHIN DRUG PROGRAM B.135 TREATMENT OF PATIENTS WITH INTERSTITIAL LUNG DISEASE (ILD) (ICD-10: D86, J

REACTIONS (2)
  - Interstitial lung disease [Fatal]
  - Lung neoplasm malignant [Unknown]
